FAERS Safety Report 16117033 (Version 1)
Quarter: 2019Q1

REPORT INFORMATION
  Report Type: Spontaneous
  Country: US (occurrence: US)
  Receive Date: 20190326
  Receipt Date: 20190326
  Transmission Date: 20190418
  Serious: No
  Sender: FDA-Public Use
  Company Number: US-PFIZER INC-2019127288

PATIENT
  Age: 48 Year
  Sex: Female
  Weight: 77.98 kg

DRUGS (1)
  1. LYRICA CR [Suspect]
     Active Substance: PREGABALIN
     Dosage: 165 MG, 2X/DAY

REACTIONS (1)
  - Drug ineffective [Unknown]
